FAERS Safety Report 12736149 (Version 1)
Quarter: 2016Q3

REPORT INFORMATION
  Report Type: Report from Study
  Country: US (occurrence: US)
  Receive Date: 20160913
  Receipt Date: 20160913
  Transmission Date: 20161109
  Serious: Yes (Other)
  Sender: FDA-Public Use
  Company Number: US-ROCHE-1828539

PATIENT
  Age: 66 Year
  Sex: Female
  Weight: 57.6 kg

DRUGS (18)
  1. BEVACIZUMAB [Suspect]
     Active Substance: BEVACIZUMAB
     Dosage: COURSE ID: 5
     Route: 042
     Dates: start: 20100216
  2. BEVACIZUMAB [Suspect]
     Active Substance: BEVACIZUMAB
     Dosage: COURSE ID: 9
     Route: 042
     Dates: start: 20100608
  3. TEMSIROLIMUS [Suspect]
     Active Substance: TEMSIROLIMUS
     Dosage: COURSE ID: 7
     Route: 042
     Dates: start: 20100413
  4. BEVACIZUMAB [Suspect]
     Active Substance: BEVACIZUMAB
     Dosage: COURSE ID: 4
     Route: 042
     Dates: start: 20100119
  5. TEMSIROLIMUS [Suspect]
     Active Substance: TEMSIROLIMUS
     Dosage: COURSE ID: 5
     Route: 042
     Dates: start: 20100216
  6. BEVACIZUMAB [Suspect]
     Active Substance: BEVACIZUMAB
     Dosage: COURSE ID: 1
     Route: 042
     Dates: start: 20091027
  7. TEMSIROLIMUS [Suspect]
     Active Substance: TEMSIROLIMUS
     Dosage: COURSE ID: 6
     Route: 042
     Dates: start: 20100316
  8. TEMSIROLIMUS [Suspect]
     Active Substance: TEMSIROLIMUS
     Dosage: COURSE ID: 8
     Route: 042
     Dates: start: 20100511
  9. BEVACIZUMAB [Suspect]
     Active Substance: BEVACIZUMAB
     Dosage: COURSE ID: 6
     Route: 042
     Dates: start: 20100316
  10. BEVACIZUMAB [Suspect]
     Active Substance: BEVACIZUMAB
     Dosage: COURSE ID: 7
     Route: 042
     Dates: start: 20100413
  11. BEVACIZUMAB [Suspect]
     Active Substance: BEVACIZUMAB
     Dosage: COURSE ID: 2
     Route: 042
     Dates: start: 20091124
  12. TEMSIROLIMUS [Suspect]
     Active Substance: TEMSIROLIMUS
     Indication: MALIGNANT NEOPLASM OF ISLETS OF LANGERHANS
     Dosage: DATE OF LAST DOSE: 29/JUN/2010?COURSE ID: 3
     Route: 042
     Dates: start: 20091222
  13. TEMSIROLIMUS [Suspect]
     Active Substance: TEMSIROLIMUS
     Dosage: COURSE ID: 2
     Route: 042
     Dates: start: 20091124
  14. BEVACIZUMAB [Suspect]
     Active Substance: BEVACIZUMAB
     Dosage: COURSE ID: 8
     Route: 042
     Dates: start: 20100511
  15. TEMSIROLIMUS [Suspect]
     Active Substance: TEMSIROLIMUS
     Dosage: COURSE ID: 9
     Route: 042
     Dates: start: 20100608
  16. BEVACIZUMAB [Suspect]
     Active Substance: BEVACIZUMAB
     Indication: MALIGNANT NEOPLASM OF ISLETS OF LANGERHANS
     Dosage: DATE OF LAST DOSE: 29/JUN/2010?COURSE ID: 3
     Route: 042
     Dates: start: 20091222
  17. TEMSIROLIMUS [Suspect]
     Active Substance: TEMSIROLIMUS
     Dosage: COURSE ID: 4
     Route: 042
     Dates: start: 20100119
  18. TEMSIROLIMUS [Suspect]
     Active Substance: TEMSIROLIMUS
     Dosage: COURSE ID: 1
     Route: 042
     Dates: start: 20091027

REACTIONS (1)
  - Hypocalcaemia [Unknown]
